FAERS Safety Report 12805973 (Version 2)
Quarter: 2016Q4

REPORT INFORMATION
  Report Type: Spontaneous
  Country: US (occurrence: US)
  Receive Date: 20161004
  Receipt Date: 20161012
  Transmission Date: 20170207
  Serious: No
  Sender: FDA-Public Use
  Company Number: US-PFIZER INC-2016459070

PATIENT
  Age: 50 Year
  Sex: Female

DRUGS (1)
  1. GABAPENTIN. [Suspect]
     Active Substance: GABAPENTIN
     Indication: MYOFASCIAL PAIN SYNDROME
     Dosage: 200 MG, 3X/DAY
     Route: 048

REACTIONS (3)
  - Red blood cell sedimentation rate increased [Unknown]
  - Drug ineffective for unapproved indication [Unknown]
  - C-reactive protein increased [Unknown]
